FAERS Safety Report 9432471 (Version 1)
Quarter: 2013Q3

REPORT INFORMATION
  Report Type: Spontaneous
  Country: US (occurrence: None)
  Receive Date: 20130730
  Receipt Date: 20130730
  Transmission Date: 20140515
  Serious: Yes (Other)
  Sender: FDA-Public Use
  Company Number: None

PATIENT
  Age: 42 Year
  Sex: Female
  Weight: 58.97 kg

DRUGS (6)
  1. PROVIGIL [Suspect]
  2. VALTREX [Concomitant]
  3. MULTIVITAMIN [Concomitant]
  4. CALCIUM [Concomitant]
  5. GLUCOSAMINE/CHONDROTININ [Concomitant]
  6. LYSINE [Concomitant]

REACTIONS (11)
  - Dizziness [None]
  - Somnolence [None]
  - Dizziness [None]
  - Fall [None]
  - Fatigue [None]
  - Product substitution issue [None]
  - Feeling abnormal [None]
  - Headache [None]
  - Product odour abnormal [None]
  - Product taste abnormal [None]
  - Product quality issue [None]
